FAERS Safety Report 5573110-3 (Version None)
Quarter: 2007Q4

REPORT INFORMATION
  Report Type: 
  Country: None (occurrence: None)
  Receive Date: 20071220
  Receipt Date: 20071220
  Transmission Date: 20080405
  Serious: Yes (Hospitalization)
  Sender: FDA-Public Use
  Company Number: None

PATIENT
  Age: 80 Year
  Sex: Female
  Weight: 69.4 kg

DRUGS (9)
  1. WARFARIN SODIUM [Suspect]
     Indication: ATRIAL FIBRILLATION
     Dosage: 2.5 MG DAILY PO
     Route: 048
  2. FLUCONAZOLE [Suspect]
     Indication: CANDIDIASIS
     Dosage: 100MG DAILY PO
     Route: 048
  3. JANUVIA [Concomitant]
  4. TOPROL-XL [Concomitant]
  5. WELLBUTRIN [Concomitant]
  6. DIGITEK [Concomitant]
  7. LOVASTATIN [Concomitant]
  8. REGLAN [Concomitant]
  9. SYNTHROID [Concomitant]

REACTIONS (4)
  - CANDIDIASIS [None]
  - HAEMORRHAGE [None]
  - INTERNATIONAL NORMALISED RATIO INCREASED [None]
  - ORAL PAIN [None]
